FAERS Safety Report 25546140 (Version 4)
Quarter: 2025Q3

REPORT INFORMATION
  Report Type: Spontaneous
  Country: US (occurrence: US)
  Receive Date: 20250713
  Receipt Date: 20250919
  Transmission Date: 20251020
  Serious: Yes (Other)
  Sender: SANOFI AVENTIS
  Company Number: US-SA-2025SA196805

PATIENT
  Age: 65 Year
  Sex: Female
  Weight: 79.55 kg

DRUGS (1)
  1. DUPIXENT [Suspect]
     Active Substance: DUPILUMAB
     Indication: Dermatitis atopic
     Dosage: 300 MG, QOW
     Route: 058
     Dates: end: 20250708

REACTIONS (10)
  - Lyme disease [Recovering/Resolving]
  - Rash macular [Unknown]
  - Burning sensation [Unknown]
  - Blood pressure increased [Unknown]
  - Upper-airway cough syndrome [Recovering/Resolving]
  - Back pain [Unknown]
  - Urticaria [Unknown]
  - Arthralgia [Unknown]
  - Movement disorder [Unknown]
  - Asthenia [Unknown]

NARRATIVE: CASE EVENT DATE: 20250701
